FAERS Safety Report 9464453 (Version 4)
Quarter: 2013Q4

REPORT INFORMATION
  Report Type: Report from Study
  Country: FR (occurrence: FR)
  Receive Date: 20130819
  Receipt Date: 20131016
  Transmission Date: 20140711
  Serious: Yes (Other)
  Sender: FDA-Public Use
  Company Number: FR-GLAXOSMITHKLINE-B0914802A

PATIENT
  Age: 66 Year
  Sex: Male
  Weight: 54 kg

DRUGS (9)
  1. OFATUMUMAB [Suspect]
     Indication: B-CELL LYMPHOMA
     Dates: start: 20130403, end: 20130710
  2. BENDAMUSTINE [Suspect]
     Indication: B-CELL LYMPHOMA
     Dates: start: 20130403, end: 20130710
  3. METHYLPREDNISOLONE [Suspect]
     Indication: B-CELL LYMPHOMA
     Dates: start: 20130403, end: 20130710
  4. BACTRIM [Concomitant]
     Indication: INFECTION PROPHYLAXIS
     Route: 048
  5. ZELITREX [Concomitant]
     Indication: INFECTION PROPHYLAXIS
     Route: 048
  6. INEXIUM [Concomitant]
     Indication: PROPHYLAXIS
     Route: 048
  7. NEUPOGEN [Concomitant]
     Indication: PROPHYLAXIS
     Route: 058
     Dates: start: 20130715, end: 20130719
  8. AUGMENTIN [Concomitant]
     Indication: BRONCHITIS
     Route: 048
     Dates: start: 20130710, end: 20130717
  9. POLARAMINE [Concomitant]
     Dates: start: 20130403

REACTIONS (2)
  - Pneumonia [Recovered/Resolved]
  - Vertigo [Unknown]
